FAERS Safety Report 23116614 (Version 2)
Quarter: 2023Q4

REPORT INFORMATION
  Report Type: Spontaneous
  Country: ES (occurrence: ES)
  Receive Date: 20231027
  Receipt Date: 20231206
  Transmission Date: 20240110
  Serious: Yes (Death, Other)
  Sender: FDA-Public Use
  Company Number: ES-KOREA IPSEN Pharma-2023-24435

PATIENT
  Age: 51 Year
  Sex: Male

DRUGS (4)
  1. CABOMETYX [Suspect]
     Active Substance: CABOZANTINIB S-MALATE
     Indication: Renal cell carcinoma
     Dosage: 60 MG, QD
     Route: 065
     Dates: start: 202105
  2. VALSARTAN [Concomitant]
     Active Substance: VALSARTAN
     Dosage: 160 MG
  3. HYDROCHLOROTHIAZIDE [Concomitant]
     Active Substance: HYDROCHLOROTHIAZIDE
  4. DACLATASVIR\SOFOSBUVIR [Concomitant]
     Active Substance: DACLATASVIR\SOFOSBUVIR
     Indication: Hepatitis C

REACTIONS (3)
  - Pneumothorax [Unknown]
  - Bronchopleural fistula [Unknown]
  - Death [Fatal]

NARRATIVE: CASE EVENT DATE: 20220226
